FAERS Safety Report 7380857-5 (Version None)
Quarter: 2011Q1

REPORT INFORMATION
  Report Type: 
  Country: None (occurrence: None)
  Receive Date: 20110329
  Receipt Date: 20100205
  Transmission Date: 20110831
  Serious: No
  Sender: FDA-Public Use
  Company Number: US-BAYER-201013907NA

PATIENT
  Sex: Female
  Weight: 65.909 kg

DRUGS (3)
  1. SYNTHROID [Concomitant]
  2. LIPITOR [Concomitant]
  3. MIRENA [Suspect]
     Indication: CONTRACEPTION
     Dosage: 20 ?G/D, CONT
     Route: 015
     Dates: start: 20090501, end: 20100204

REACTIONS (3)
  - VAGINAL ODOUR [None]
  - AMENORRHOEA [None]
  - VAGINAL INFECTION [None]
